FAERS Safety Report 9590164 (Version 1)
Quarter: 2013Q4

REPORT INFORMATION
  Report Type: Spontaneous
  Country: US (occurrence: US)
  Receive Date: 20131003
  Receipt Date: 20131003
  Transmission Date: 20140711
  Serious: No
  Sender: FDA-Public Use
  Company Number: US-AMGEN-USASP2012074882

PATIENT
  Sex: Female

DRUGS (8)
  1. ENBREL [Suspect]
     Indication: RHEUMATOID ARTHRITIS
     Dosage: 50 MG, QWK
     Route: 058
  2. MELOXICAM [Concomitant]
     Dosage: 7.5 MG, UNK
  3. DIOVAN [Concomitant]
     Dosage: 40 MG, UNK
  4. RAMADOL [Concomitant]
     Dosage: 50 MG, UNK
  5. HYDROXYCHLOROQUINE [Concomitant]
     Dosage: 200 MG, UNK
  6. METOPROLOL [Concomitant]
     Dosage: 25 MG, UNK
  7. LEVOTHROID [Concomitant]
     Dosage: 100 MUG, UNK
  8. TYLENOL                            /00020001/ [Concomitant]
     Dosage: 325 MG, UNK

REACTIONS (1)
  - Injection site pain [Unknown]
